FAERS Safety Report 7432079-7 (Version None)
Quarter: 2011Q2

REPORT INFORMATION
  Report Type: 
  Country: None (occurrence: None)
  Receive Date: 20110422
  Receipt Date: 20110411
  Transmission Date: 20111010
  Serious: Yes (Other)
  Sender: FDA-Public Use
  Company Number: CA-JNJFOC-20110408147

PATIENT
  Age: 63 Year
  Sex: Female
  Weight: 62.14 kg

DRUGS (2)
  1. REACTINE EXTRA STRENGTH [Suspect]
     Indication: RASH
     Route: 048
  2. REACTINE EXTRA STRENGTH [Suspect]
     Indication: PRURITUS
     Route: 048

REACTIONS (3)
  - BLOOD PRESSURE INCREASED [None]
  - HEART RATE INCREASED [None]
  - CHEST PAIN [None]
